FAERS Safety Report 8011254-7 (Version None)
Quarter: 2011Q4

REPORT INFORMATION
  Report Type: 
  Country: None (occurrence: None)
  Receive Date: 20111227
  Receipt Date: 20111227
  Transmission Date: 20120403
  Serious: No
  Sender: FDA-Public Use
  Company Number: None

PATIENT
  Sex: Male
  Weight: 90.264 kg

DRUGS (1)
  1. CHANTIX [Suspect]
     Indication: SMOKING CESSATION THERAPY
     Dosage: 1MG
     Route: 048
     Dates: start: 20111023, end: 20111223

REACTIONS (3)
  - TREATMENT NONCOMPLIANCE [None]
  - NAUSEA [None]
  - MALAISE [None]
